FAERS Safety Report 15041803 (Version 2)
Quarter: 2019Q3

REPORT INFORMATION
  Report Type: Report from Study
  Country: HN (occurrence: HN)
  Receive Date: 20180621
  Receipt Date: 20190822
  Transmission Date: 20191004
  Serious: Yes (Life-Threatening, Hospitalization)
  Sender: FDA-Public Use
  Company Number: PHHY2018HN021614

PATIENT
  Age: 74 Year
  Sex: Male

DRUGS (2)
  1. EXFORGE [Suspect]
     Active Substance: AMLODIPINE BESYLATE\VALSARTAN
     Indication: PRODUCT USED FOR UNKNOWN INDICATION
     Dosage: (AMLODIPINE 5 MG, VALSARTAN 160 MG)
     Route: 065
  2. EXFORGE HCT [Suspect]
     Active Substance: AMLODIPINE BESYLATE\HYDROCHLOROTHIAZIDE\VALSARTAN
     Indication: PRODUCT USED FOR UNKNOWN INDICATION
     Dosage: (AMLODIPINE 5MG, HYDROCHLOROTHIAZIDE 12.5MG, VALSARTAN 160MG)
     Route: 065

REACTIONS (13)
  - Dehydration [Unknown]
  - Eating disorder [Unknown]
  - Feeling abnormal [Unknown]
  - Weight decreased [Unknown]
  - Weight increased [Unknown]
  - Drug intolerance [Unknown]
  - Mental disorder [Unknown]
  - Polyuria [Unknown]
  - Depression [Unknown]
  - Condition aggravated [Unknown]
  - Anxiety [Unknown]
  - Malaise [Unknown]
  - Wrong technique in product usage process [Unknown]
